FAERS Safety Report 4440054-X (Version None)
Quarter: 2004Q3

REPORT INFORMATION
  Report Type: 
  Country: None (occurrence: None)
  Receive Date: 20040902
  Receipt Date: 20040824
  Transmission Date: 20050211
  Serious: Yes (Hospitalization)
  Sender: FDA-Public Use
  Company Number: US-GLAXOSMITHKLINE-A0524201A

PATIENT
  Age: 41 Year
  Sex: Female

DRUGS (3)
  1. PAXIL [Suspect]
     Indication: DEPRESSION
     Dosage: 5MG PER DAY
     Route: 048
     Dates: end: 20030801
  2. LEXAPRO [Concomitant]
  3. BUSPAR [Concomitant]

REACTIONS (13)
  - ANXIETY [None]
  - DEPRESSION [None]
  - DIZZINESS [None]
  - DRUG WITHDRAWAL SYNDROME [None]
  - HEADACHE [None]
  - INSOMNIA [None]
  - LIBIDO DECREASED [None]
  - MUSCLE TWITCHING [None]
  - NAUSEA [None]
  - PANIC ATTACK [None]
  - POLLAKIURIA [None]
  - SUICIDAL IDEATION [None]
  - TREMOR [None]
